FAERS Safety Report 9687078 (Version 5)
Quarter: 2014Q2

REPORT INFORMATION
  Report Type: Spontaneous
  Country: US (occurrence: US)
  Receive Date: 20131113
  Receipt Date: 20140527
  Transmission Date: 20141212
  Serious: Yes (Hospitalization, Other)
  Sender: FDA-Public Use
  Company Number: US-B.I. PHARMACEUTICALS,INC./RIDGEFIELD-2013-BI-31343BP

PATIENT
  Age: 72 Year
  Sex: Female
  Weight: 56.7 kg

DRUGS (9)
  1. PRADAXA [Suspect]
     Indication: ATRIAL FIBRILLATION
     Route: 065
     Dates: start: 20110901, end: 20111107
  2. PLAVIX [Suspect]
     Indication: PRODUCT USED FOR UNKNOWN INDICATION
     Route: 065
  3. ASPIRIN [Suspect]
     Indication: PRODUCT USED FOR UNKNOWN INDICATION
     Route: 065
  4. NEXIUM [Concomitant]
     Route: 065
     Dates: start: 2008
  5. LEVOTHYROXINE [Concomitant]
     Route: 065
     Dates: start: 2008
  6. TRIBENZOR [Concomitant]
     Route: 048
     Dates: start: 2008
  7. TAPAZOLE [Concomitant]
     Indication: HYPERTHYROIDISM
     Dosage: 15 MG
     Route: 048
  8. NITROFURANTOIN [Concomitant]
     Route: 048
  9. AMLODIPINE [Concomitant]
     Route: 065

REACTIONS (4)
  - Lower gastrointestinal haemorrhage [Recovered/Resolved]
  - Coagulopathy [Unknown]
  - Haemorrhagic anaemia [Unknown]
  - Chest pain [Recovered/Resolved]
